FAERS Safety Report 4672571-1 (Version None)
Quarter: 2005Q2

REPORT INFORMATION
  Report Type: 
  Country: None (occurrence: None)
  Receive Date: 20050524
  Receipt Date: 20050520
  Transmission Date: 20051028
  Serious: Yes (Other)
  Sender: FDA-Public Use
  Company Number: US-GLAXOSMITHKLINE-A0559556A

PATIENT
  Age: 40 Year
  Sex: Female

DRUGS (1)
  1. PAXIL CR [Suspect]
     Dosage: 25MG PER DAY
     Route: 048
     Dates: start: 20040801

REACTIONS (6)
  - DISTURBANCE IN ATTENTION [None]
  - DIZZINESS [None]
  - FEELING ABNORMAL [None]
  - MAJOR DEPRESSION [None]
  - NAUSEA [None]
  - TINNITUS [None]
